FAERS Safety Report 23951531 (Version 4)
Quarter: 2024Q4

REPORT INFORMATION
  Report Type: Spontaneous
  Country: BR (occurrence: BR)
  Receive Date: 20240607
  Receipt Date: 20241023
  Transmission Date: 20250115
  Serious: No
  Sender: MYLAN
  Company Number: BR-MYLANLABS-2024M1025610

PATIENT
  Age: 79 Year
  Sex: Female
  Weight: 56 kg

DRUGS (6)
  1. PREGABALIN [Suspect]
     Active Substance: PREGABALIN
     Indication: Rheumatoid arthritis
     Dosage: 65 MILLIGRAM, QD
     Route: 048
     Dates: start: 1992, end: 2023
  2. INFLIXIMAB [Suspect]
     Active Substance: INFLIXIMAB
     Indication: Rheumatoid arthritis
     Dosage: 2 DOSAGE FORM
     Route: 042
     Dates: start: 20221212
  3. INFLIXIMAB [Suspect]
     Active Substance: INFLIXIMAB
     Dosage: 200 MILLIGRAM (EVERY 2 MONTHS)
     Route: 042
     Dates: start: 20240812
  4. HYDROXYCHLOROQUINE [Concomitant]
     Active Substance: HYDROXYCHLOROQUINE
     Indication: Rheumatoid arthritis
     Dosage: 1 DOSAGE FORM, QD
     Route: 048
     Dates: start: 1992
  5. METHOTREXATE [Concomitant]
     Active Substance: METHOTREXATE
     Indication: Rheumatoid arthritis
     Dosage: 2 MILLILITER
     Route: 042
  6. PREDNISOLONE [Concomitant]
     Active Substance: PREDNISOLONE
     Indication: Rheumatoid arthritis
     Dosage: 1 DOSAGE FORM, QD
     Route: 048
     Dates: start: 1992

REACTIONS (12)
  - Influenza [Recovering/Resolving]
  - Abdominal discomfort [Recovered/Resolved]
  - Ill-defined disorder [Not Recovered/Not Resolved]
  - Vitamin D decreased [Unknown]
  - Spinal pain [Recovered/Resolved]
  - Pain in extremity [Recovered/Resolved]
  - Labyrinthitis [Unknown]
  - Thyroid disorder [Unknown]
  - Hypertension [Unknown]
  - Pain [Recovered/Resolved]
  - Anxiety [Unknown]
  - Off label use [Unknown]

NARRATIVE: CASE EVENT DATE: 20230101
